FAERS Safety Report 5313946-7 (Version None)
Quarter: 2007Q2

REPORT INFORMATION
  Report Type: 
  Country: None (occurrence: None)
  Receive Date: 20070501
  Receipt Date: 20070419
  Transmission Date: 20071010
  Serious: Yes (Other)
  Sender: FDA-Public Use
  Company Number: FR-PFIZER INC-2007005184

PATIENT
  Sex: Female
  Weight: 78 kg

DRUGS (3)
  1. LYRICA [Suspect]
     Indication: TRIGEMINAL NEURALGIA
     Dosage: DAILY DOSE:225MG
     Route: 048
     Dates: start: 20060601, end: 20061020
  2. CLONAZEPAM [Concomitant]
     Indication: NEURALGIA
     Route: 048
  3. BACLOFEN [Concomitant]
     Indication: NEURALGIA
     Route: 048

REACTIONS (4)
  - GENERALISED OEDEMA [None]
  - LOCALISED OEDEMA [None]
  - NAUSEA [None]
  - OEDEMA PERIPHERAL [None]
